FAERS Safety Report 8571471-4 (Version None)
Quarter: 2012Q3

REPORT INFORMATION
  Report Type: 
  Country: None (occurrence: None)
  Receive Date: 20120806
  Receipt Date: 20120730
  Transmission Date: 20120928
  Serious: Yes (Hospitalization, Other)
  Sender: FDA-Public Use
  Company Number: US-009507513-2009-190399-NL

PATIENT
  Sex: Female
  Weight: 72.6 kg

DRUGS (4)
  1. NUVARING [Suspect]
     Indication: OVARIAN CYST
  2. GLUCOPHAGE [Concomitant]
     Indication: ENDOMETRIOSIS
     Dosage: ALSO USED FOR WEIGHT LOSS
     Dates: start: 20070201, end: 20070221
  3. NUVARING [Suspect]
     Indication: MENSTRUATION IRREGULAR
     Dosage: CONTINUING: NO
     Dates: start: 20070209, end: 20070224
  4. NUVARING [Suspect]
     Indication: ENDOMETRIOSIS

REACTIONS (8)
  - OFF LABEL USE [None]
  - TRANSVERSE SINUS THROMBOSIS [None]
  - NASOPHARYNGITIS [None]
  - JOINT INJURY [None]
  - SPINAL FRACTURE [None]
  - SINUSITIS [None]
  - OVARIAN CYST RUPTURED [None]
  - VENOUS THROMBOSIS [None]
